FAERS Safety Report 8019238-X (Version None)
Quarter: 2012Q1

REPORT INFORMATION
  Report Type: 
  Country: None (occurrence: None)
  Receive Date: 20120103
  Receipt Date: 20111221
  Transmission Date: 20120608
  Serious: Yes (Hospitalization, Other)
  Sender: FDA-Public Use
  Company Number: DE-UCBSA-039167

PATIENT
  Sex: Female
  Weight: 72 kg

DRUGS (12)
  1. VOLTAREN [Concomitant]
     Dates: start: 20110501
  2. CALCIUM CARBONATE [Concomitant]
     Indication: OSTEOPOROSIS
     Dosage: 400 IE
  3. PREDNISOLONE [Concomitant]
     Dates: start: 20110509, end: 20110606
  4. PREDNISOLONE [Concomitant]
     Indication: RHEUMATOID ARTHRITIS
     Dates: end: 20110506
  5. CALCIUM CARBONATE [Concomitant]
     Indication: VITAMIN D DEFICIENCY
     Dosage: 400 IE
  6. TETANUS VACC [Concomitant]
     Dates: start: 20110506
  7. VOLTAREN [Concomitant]
     Indication: RHEUMATOID ARTHRITIS
     Dosage: 75 MG ,PRN (AS NEEDED)
  8. OLMESARTAN MEDOXOMIL [Concomitant]
     Indication: HYPERTENSION
  9. PREDNISOLONE [Concomitant]
  10. CERTOLIZUMAB PEGOL [Suspect]
     Indication: RHEUMATOID ARTHRITIS
     Dosage: NO. OF DOSES:2
     Route: 058
     Dates: start: 20110511, end: 20110607
  11. CERTOLIZUMAB PEGOL [Suspect]
     Dosage: NO. OF DOSES:3
     Route: 058
     Dates: start: 20110413, end: 20110511
  12. PREDNISOLONE [Concomitant]
     Dates: start: 20110607

REACTIONS (3)
  - ERYTHEMA NODOSUM [None]
  - CONTUSION [None]
  - RASH [None]
